FAERS Safety Report 20503929 (Version 1)
Quarter: 2022Q1

REPORT INFORMATION
  Report Type: Spontaneous
  Country: US (occurrence: US)
  Receive Date: 20220222
  Receipt Date: 20220222
  Transmission Date: 20220423
  Serious: No
  Sender: FDA-Public Use
  Company Number: US-PFIZER INC-202101631452

PATIENT
  Age: 36 Year
  Sex: Male

DRUGS (2)
  1. CELECOXIB [Suspect]
     Active Substance: CELECOXIB
     Dosage: 200 MG
  2. PREDNISONE [Suspect]
     Active Substance: PREDNISONE
     Dosage: 10 MG

REACTIONS (1)
  - Drug ineffective [Unknown]
